FAERS Safety Report 4421934-8 (Version None)
Quarter: 2004Q3

REPORT INFORMATION
  Report Type: 
  Country: None (occurrence: None)
  Receive Date: 20040806
  Receipt Date: 20040806
  Transmission Date: 20050211
  Serious: Yes (Hospitalization)
  Sender: FDA-Public Use
  Company Number: None

PATIENT
  Sex: Female

DRUGS (1)
  1. KETOROLAC 10 MG [Suspect]
     Indication: PAIN
     Dosage: ORAL
     Route: 048

REACTIONS (3)
  - NAUSEA [None]
  - RENAL FAILURE ACUTE [None]
  - VOMITING [None]
